FAERS Safety Report 5292648-X (Version None)
Quarter: 2007Q2

REPORT INFORMATION
  Report Type: 
  Country: None (occurrence: None)
  Receive Date: 20070404
  Receipt Date: 20070322
  Transmission Date: 20071010
  Serious: Yes (Death, Other)
  Sender: FDA-Public Use
  Company Number: 2006JP005507

PATIENT
  Age: 56 Year
  Sex: Male

DRUGS (9)
  1. FUNGUARD (MICAFUNGIN) INJECTION [Suspect]
     Dosage: 100 MG, IV DRIP
     Route: 041
     Dates: start: 20061216, end: 20061220
  2. FUNGUARD (MICAFUNGIN) INJECTION [Suspect]
     Dosage: 100 MG, IV DRIP
     Route: 041
     Dates: start: 20061222
  3. VANCOMYCIN [Suspect]
     Dosage: SEE IMAGE
     Route: 041
     Dates: start: 20061216, end: 20061221
  4. VANCOMYCIN [Suspect]
     Dosage: SEE IMAGE
     Route: 041
     Dates: start: 20061215
  5. MOBENZOCIN [Concomitant]
  6. TOBRAMYCIN SULFATE [Concomitant]
  7. TAIPERACILIN (PIPERACILLIN SODIUM) [Concomitant]
  8. LEUCOVORIN CALCIUM [Concomitant]
  9. BENAMBAX (PENTAMIDINE) [Concomitant]

REACTIONS (3)
  - ADVERSE EVENT [None]
  - BLOOD CREATININE INCREASED [None]
  - HAEMODIALYSIS [None]
